FAERS Safety Report 8329560-5 (Version None)
Quarter: 2012Q2

REPORT INFORMATION
  Report Type: 
  Country: None (occurrence: None)
  Receive Date: 20120502
  Receipt Date: 20120426
  Transmission Date: 20120825
  Serious: No
  Sender: FDA-Public Use
  Company Number: US-PFIZER INC-2012089696

PATIENT
  Sex: Female
  Weight: 69.841 kg

DRUGS (8)
  1. EFFEXOR XR [Suspect]
     Indication: MAJOR DEPRESSION
     Dosage: 37.5 MG, 2X/DAY
     Route: 048
  2. EFFEXOR XR [Suspect]
     Dosage: 150 MG, UNK
  3. VENLAFAXINE [Suspect]
     Indication: MAJOR DEPRESSION
     Dosage: 150 MG, IN THE MORNING
     Route: 048
     Dates: start: 20120301, end: 20120401
  4. EFFEXOR XR [Suspect]
     Dosage: 150MG IN THE MORNING AND 37.5MG IN THE NIGHT
     Route: 048
     Dates: end: 20120301
  5. EFFEXOR XR [Suspect]
     Dosage: 37.5 MG, IN THE NIGHT
     Route: 048
     Dates: start: 20120301, end: 20120410
  6. LISINOPRIL [Concomitant]
     Indication: HYPERTENSION
     Dosage: UNK
  7. EFFEXOR XR [Suspect]
     Dosage: 75MG IN THE MORNING AND 37.5MG IN THE NIGHT
     Route: 048
  8. EFFEXOR XR [Suspect]
     Dosage: 150MG IN THE MORNING AND 37.5MG IN THE NIGHT
     Route: 048
     Dates: start: 20120410

REACTIONS (1)
  - URTICARIA [None]
